FAERS Safety Report 5757934-5 (Version None)
Quarter: 2008Q2

REPORT INFORMATION
  Report Type: 
  Country: None (occurrence: None)
  Receive Date: 20080602
  Receipt Date: 20080602
  Transmission Date: 20081010
  Serious: Yes (Other)
  Sender: FDA-Public Use
  Company Number: None

PATIENT
  Age: 39 Year
  Sex: Female
  Weight: 90.2658 kg

DRUGS (1)
  1. BYETTA [Suspect]
     Dosage: 10 MG 2
     Dates: start: 20070501, end: 20071201

REACTIONS (4)
  - FOOD ALLERGY [None]
  - HYPERSENSITIVITY [None]
  - KIDNEY INFECTION [None]
  - MENORRHAGIA [None]
